FAERS Safety Report 16418971 (Version 1)
Quarter: 2019Q2

REPORT INFORMATION
  Report Type: Spontaneous
  Country: US (occurrence: US)
  Receive Date: 20190612
  Receipt Date: 20190612
  Transmission Date: 20190711
  Serious: No
  Sender: FDA-Public Use
  Company Number: US-SUN PHARMACEUTICAL INDUSTRIES LTD-2018US-189470

PATIENT
  Sex: Female

DRUGS (1)
  1. CLONAZEPAM. [Suspect]
     Active Substance: CLONAZEPAM
     Indication: PRODUCT USED FOR UNKNOWN INDICATION
     Dosage: UNK
     Route: 065

REACTIONS (8)
  - Swelling face [Unknown]
  - Eye disorder [Unknown]
  - Dyspnoea [Unknown]
  - Dry eye [Unknown]
  - Tongue disorder [Unknown]
  - Headache [Unknown]
  - Dry mouth [Unknown]
  - Insomnia [Unknown]
